FAERS Safety Report 4619938-5 (Version None)
Quarter: 2005Q1

REPORT INFORMATION
  Report Type: 
  Country: None (occurrence: None)
  Receive Date: 20050323
  Receipt Date: 20050323
  Transmission Date: 20050727
  Serious: Yes (Life-Threatening)
  Sender: FDA-Public Use
  Company Number: None

PATIENT
  Age: 79 Year
  Sex: Male

DRUGS (1)
  1. AMIODARONE HCL [Suspect]
     Dosage: 200 MG PO Q DAY
     Route: 048
     Dates: start: 20050201, end: 20050311

REACTIONS (1)
  - TOXIC EPIDERMAL NECROLYSIS [None]
